FAERS Safety Report 13868449 (Version 2)
Quarter: 2017Q3

REPORT INFORMATION
  Report Type: Spontaneous
  Country: IT (occurrence: IT)
  Receive Date: 20170815
  Receipt Date: 20170914
  Transmission Date: 20171127
  Serious: Yes (Other)
  Sender: FDA-Public Use
  Company Number: IT-ROCHE-1977444

PATIENT
  Age: 63 Year
  Sex: Male

DRUGS (2)
  1. XOLAIR [Suspect]
     Active Substance: OMALIZUMAB
     Route: 058
     Dates: start: 20170526
  2. XOLAIR [Suspect]
     Active Substance: OMALIZUMAB
     Indication: ASTHMA
     Dosage: CUMULATIVE DOSE 21443.3457
     Route: 058
     Dates: start: 20150805

REACTIONS (16)
  - Fatigue [Unknown]
  - Quality of life decreased [Unknown]
  - Pruritus [Unknown]
  - Lymphadenopathy [Unknown]
  - Malaise [Unknown]
  - Headache [Unknown]
  - Pain [Unknown]
  - Asthenia [Unknown]
  - Rash [Unknown]
  - Influenza [Unknown]
  - Palpitations [Unknown]
  - Salivary gland cancer [Unknown]
  - Arthralgia [Unknown]
  - Urticaria [Unknown]
  - Neck pain [Unknown]
  - Parotitis [Unknown]

NARRATIVE: CASE EVENT DATE: 20170217
